FAERS Safety Report 8489120-2 (Version None)
Quarter: 2012Q3

REPORT INFORMATION
  Report Type: 
  Country: None (occurrence: None)
  Receive Date: 20120705
  Receipt Date: 20120626
  Transmission Date: 20120928
  Serious: Yes (Hospitalization, Other)
  Sender: FDA-Public Use
  Company Number: PHHY2012JP017176

PATIENT
  Age: 63 Year
  Sex: Male

DRUGS (10)
  1. RASILEZ [Suspect]
     Indication: HYPERTENSION
     Dosage: 150 MG/DAILY
     Route: 048
     Dates: end: 20120216
  2. CRESTOR [Concomitant]
     Route: 048
  3. SAWATENE [Concomitant]
     Route: 048
  4. PIRFENIDONE [Concomitant]
     Dosage: 600 MG/DAILY
     Route: 048
  5. OMEPRAZOLE [Concomitant]
     Route: 048
  6. ZETIA [Concomitant]
     Route: 048
  7. INDAPAMIDE [Concomitant]
     Route: 048
  8. MEDIPEACE [Concomitant]
     Route: 048
  9. MICARDIS [Concomitant]
     Route: 048
  10. DILTIAZEM HCL [Concomitant]
     Dosage: UNK
     Route: 048

REACTIONS (4)
  - MALAISE [None]
  - DIABETES MELLITUS [None]
  - POLYDIPSIA [None]
  - THIRST [None]
